FAERS Safety Report 13679304 (Version 2)
Quarter: 2017Q2

REPORT INFORMATION
  Report Type: Spontaneous
  Country: US (occurrence: US)
  Receive Date: 20170622
  Receipt Date: 20170624
  Transmission Date: 20170830
  Serious: Yes (Other)
  Sender: FDA-Public Use
  Company Number: US-ENDO PHARMACEUTICALS INC-2017-003369

PATIENT
  Sex: Male
  Weight: 117.91 kg

DRUGS (6)
  1. OPANA ER [Suspect]
     Active Substance: OXYMORPHONE HYDROCHLORIDE
     Dosage: 30 MG, BID
     Route: 048
     Dates: start: 2012, end: 2013
  2. ASPIRIN                            /00002701/ [Concomitant]
     Active Substance: ASPIRIN
     Indication: ILL-DEFINED DISORDER
     Dosage: 81 MG, 1 TABLET NOW AND THEN
     Route: 048
     Dates: start: 201701
  3. PERCOCET [Concomitant]
     Active Substance: ACETAMINOPHEN\OXYCODONE HYDROCHLORIDE
     Indication: PAIN
     Dosage: 10/325 MG 2 TABLETS PER DAY, SEPARATED BY 6 OR 7 HOURS AS NEEDED
     Route: 048
     Dates: start: 201702
  4. PERCOCET [Concomitant]
     Active Substance: ACETAMINOPHEN\OXYCODONE HYDROCHLORIDE
     Dosage: 7.5/325MG 2 TABLETS PER DAY, SEPARATED BY 6 OR 7 HOURS AS NEEDED
     Route: 048
     Dates: start: 2013, end: 201702
  5. PERCOCET [Concomitant]
     Active Substance: ACETAMINOPHEN\OXYCODONE HYDROCHLORIDE
     Dosage: 5/325MG USED SPARINGLY, 60 TABLETS PER MONTH
     Route: 048
     Dates: start: 2012, end: 2013
  6. OPANA ER [Suspect]
     Active Substance: OXYMORPHONE HYDROCHLORIDE
     Indication: PAIN
     Dosage: 30 MG, EVERY 10 HOURS ON AN EMPTY STOMACH WITH A TABLESPOON OF SPARKLING WATER
     Route: 048
     Dates: start: 2013

REACTIONS (10)
  - Weight increased [Recovering/Resolving]
  - Ligament rupture [Unknown]
  - Arthralgia [Not Recovered/Not Resolved]
  - Defaecation urgency [Not Recovered/Not Resolved]
  - Drug hypersensitivity [Not Recovered/Not Resolved]
  - Intentional product misuse [Unknown]
  - Withdrawal syndrome [Not Recovered/Not Resolved]
  - Bone neoplasm [Not Recovered/Not Resolved]
  - Tremor [Not Recovered/Not Resolved]
  - Sleep disorder [Not Recovered/Not Resolved]

NARRATIVE: CASE EVENT DATE: 2014
